FAERS Safety Report 17636498 (Version 1)
Quarter: 2020Q2

REPORT INFORMATION
  Report Type: Spontaneous
  Country: US (occurrence: US)
  Receive Date: 20200404
  Receipt Date: 20200404
  Transmission Date: 20200713
  Serious: Yes (Life-Threatening, Hospitalization, Disabling, Other)
  Sender: FDA-Public Use
  Company Number: None

PATIENT
  Age: 35 Year
  Sex: Male
  Weight: 76.5 kg

DRUGS (9)
  1. XANAX [Concomitant]
     Active Substance: ALPRAZOLAM
  2. MULTIVITAMIN [Concomitant]
     Active Substance: VITAMINS
  3. ABILIFY [Concomitant]
     Active Substance: ARIPIPRAZOLE
  4. VERSED [Suspect]
     Active Substance: MIDAZOLAM HYDROCHLORIDE
     Indication: ANAESTHESIA
     Dosage: ?          QUANTITY:10 INJECTION(S);?
     Route: 042
  5. ZOLOFT [Concomitant]
     Active Substance: SERTRALINE HYDROCHLORIDE
  6. ZINC. [Concomitant]
     Active Substance: ZINC
  7. TRAZODONE [Concomitant]
     Active Substance: TRAZODONE HYDROCHLORIDE
  8. LAMICTAL [Concomitant]
     Active Substance: LAMOTRIGINE
  9. B6 [Concomitant]
     Active Substance: PYRIDOXINE HYDROCHLORIDE

REACTIONS (8)
  - Drug withdrawal syndrome [None]
  - Victim of crime [None]
  - Anaesthetic complication [None]
  - Victim of abuse [None]
  - Product prescribing issue [None]
  - Respiratory arrest [None]
  - Heart rate increased [None]
  - Multiple injuries [None]

NARRATIVE: CASE EVENT DATE: 20190722
